FAERS Safety Report 12931441 (Version 1)
Quarter: 2016Q4

REPORT INFORMATION
  Report Type: Spontaneous
  Country: US (occurrence: US)
  Receive Date: 20161110
  Receipt Date: 20161110
  Transmission Date: 20170207
  Serious: Yes (Other)
  Sender: FDA-Public Use
  Company Number: US-JNJFOC-20161106187

PATIENT

DRUGS (3)
  1. CISPLATIN. [Suspect]
     Active Substance: CISPLATIN
     Indication: SOFT TISSUE SARCOMA
     Dosage: 2 CYCLES OF INTRA-ARTERIAL CISPLATIN OVER 4 HOURS ON DAY 1
     Route: 013
  2. DOXORUBICIN HYDROCHLORIDE. [Suspect]
     Active Substance: DOXORUBICIN HYDROCHLORIDE
     Indication: SOFT TISSUE SARCOMA
     Dosage: REGIMEN A: 2 CYCLES, DAYS 1 TO 3 EVERY 3 WEEKS. REGIMEN B: 2-3 CYCLES ON DAYS 1 TO 2
     Route: 042
  3. IFOSFAMIDE. [Suspect]
     Active Substance: IFOSFAMIDE
     Indication: SOFT TISSUE SARCOMA
     Dosage: 2 TO 3 CYCLES ON DAYS 1 TO 5
     Route: 065

REACTIONS (7)
  - Deep vein thrombosis [Unknown]
  - Off label use [Unknown]
  - Wound dehiscence [Unknown]
  - Product use issue [Unknown]
  - Neutropenia [Unknown]
  - Sepsis [Unknown]
  - Fracture [Unknown]
